FAERS Safety Report 9401417 (Version 2)
Quarter: 2013Q4

REPORT INFORMATION
  Report Type: Spontaneous
  Country: US (occurrence: US)
  Receive Date: 20130715
  Receipt Date: 20131001
  Transmission Date: 20140711
  Serious: Yes (Other)
  Sender: FDA-Public Use
  Company Number: US-BAXTER-2013BAX026416

PATIENT
  Age: 11 Year
  Sex: Male

DRUGS (5)
  1. FEIBA NF [Suspect]
     Indication: RETROPERITONEAL HAEMORRHAGE
     Route: 065
     Dates: start: 20110730
  2. FEIBA NF [Suspect]
     Indication: FACTOR VIII DEFICIENCY
     Dates: start: 20110731
  3. FACTOR VIIA, RECOMBINANT [Suspect]
     Indication: RETROPERITONEAL HAEMORRHAGE
     Dosage: 90 MCG/KG
     Route: 065
     Dates: start: 20110730
  4. FACTOR XIII [Concomitant]
     Indication: RETROPERITONEAL HAEMORRHAGE
     Dates: start: 20110730
  5. FACTOR XIII [Concomitant]
     Dates: start: 20110731

REACTIONS (1)
  - Therapeutic response decreased [Recovering/Resolving]
